FAERS Safety Report 18273394 (Version 1)
Quarter: 2020Q3

REPORT INFORMATION
  Report Type: Spontaneous
  Country: US (occurrence: US)
  Receive Date: 20200916
  Receipt Date: 20200916
  Transmission Date: 20201103
  Serious: No
  Sender: FDA-Public Use
  Company Number: US-THERAPEUTICSMD-2020TMD03124

PATIENT
  Age: 46 Year
  Sex: Female

DRUGS (1)
  1. IMVEXXY [Suspect]
     Active Substance: ESTRADIOL
     Dosage: UNK
     Route: 067

REACTIONS (3)
  - Product residue present [Unknown]
  - Vaginal haemorrhage [Not Recovered/Not Resolved]
  - Administration site pain [Recovering/Resolving]

NARRATIVE: CASE EVENT DATE: 20200723
